FAERS Safety Report 4564488-8 (Version None)
Quarter: 2005Q1

REPORT INFORMATION
  Report Type: 
  Country: None (occurrence: None)
  Receive Date: 20050128
  Receipt Date: 20050121
  Transmission Date: 20050727
  Serious: Yes (Other)
  Sender: FDA-Public Use
  Company Number: US-BRISTOL-MYERS SQUIBB COMPANY-12834008

PATIENT
  Age: 66 Year

DRUGS (3)
  1. PACLITAXEL [Suspect]
     Indication: NON-SMALL CELL LUNG CANCER
     Route: 042
  2. CARBOPLATIN [Suspect]
     Indication: NON-SMALL CELL LUNG CANCER
     Dosage: ADJUSTED TO AUC 6
     Route: 042
  3. TARGRETIN [Suspect]
     Indication: NON-SMALL CELL LUNG CANCER
     Dosage: CAPSULES
     Route: 048

REACTIONS (1)
  - DYSPNOEA [None]
